FAERS Safety Report 8726641 (Version 3)
Quarter: 2012Q4

REPORT INFORMATION
  Report Type: 
  Country: DK (occurrence: DK)
  Receive Date: 20120816
  Receipt Date: 20121022
  Transmission Date: 20130627
  Serious: Yes (Other)
  Sender: FDA-Public Use
  Company Number: PHHO2012DK010002

PATIENT
  Age: 48 Year
  Sex: Male
  Weight: 93.3 kg

DRUGS (6)
  1. AMN107 [Suspect]
     Indication: ACUTE LYMPHOCYTIC LEUKAEMIA
     Dosage: 300 mg, BID
     Route: 048
     Dates: start: 20080724, end: 20120720
  2. AMN107 [Interacting]
     Dosage: No treatment received
     Dates: start: 20120721, end: 20120727
  3. AMN107 [Interacting]
     Route: 048
     Dates: start: 20120728
  4. CIPROFLOXACIN [Interacting]
     Indication: EPIDIDYMITIS
     Dosage: 500 mg, BID
     Dates: start: 20120710
  5. METFORMIN [Concomitant]
     Indication: DIABETES MELLITUS
     Dosage: 1000 mg, BID
     Dates: start: 20090826
  6. PANTOLOC [Concomitant]
     Indication: OESOPHAGITIS
     Dosage: 40 mg, QD
     Dates: start: 20101018

REACTIONS (1)
  - Drug interaction [Recovered/Resolved]
